FAERS Safety Report 15061189 (Version 1)
Quarter: 2018Q2

REPORT INFORMATION
  Report Type: Spontaneous
  Country: US (occurrence: US)
  Receive Date: 20180625
  Receipt Date: 20180625
  Transmission Date: 20180711
  Serious: No
  Sender: FDA-Public Use
  Company Number: US-ROCHE-1971925

PATIENT
  Sex: Female

DRUGS (1)
  1. XELODA [Suspect]
     Active Substance: CAPECITABINE
     Indication: BREAST CANCER METASTATIC
     Route: 048

REACTIONS (7)
  - Haemorrhage [Unknown]
  - Skin wrinkling [Unknown]
  - Metastatic neoplasm [Unknown]
  - Feeling cold [Unknown]
  - Feeling abnormal [Unknown]
  - Hot flush [Unknown]
  - Bone pain [Unknown]
